FAERS Safety Report 8553040-5 (Version None)
Quarter: 2012Q3

REPORT INFORMATION
  Report Type: 
  Country: None (occurrence: None)
  Receive Date: 20120731
  Receipt Date: 20120719
  Transmission Date: 20120928
  Serious: Yes (Other)
  Sender: FDA-Public Use
  Company Number: US-JNJFOC-20120709912

PATIENT
  Sex: Female

DRUGS (11)
  1. CYCLOPHOSPHAMIDE [Suspect]
     Indication: BREAST CANCER
     Route: 065
  2. PSYCHOTROPICS NOS [Concomitant]
     Indication: AFFECTIVE DISORDER
     Route: 065
  3. PSYCHOTROPICS NOS [Concomitant]
     Indication: MENOPAUSAL SYMPTOMS
     Route: 065
  4. DOXORUBICIN HYDROCHLORIDE [Suspect]
     Indication: BREAST CANCER
     Route: 042
  5. DOCETAXEL [Suspect]
     Indication: BREAST CANCER
     Route: 065
  6. TRASTUZUMAB [Suspect]
     Indication: BREAST CANCER
     Route: 065
  7. TAMOXIFEN CITRATE [Suspect]
     Indication: BREAST CANCER
     Route: 065
  8. LETROZOLE [Suspect]
     Indication: BREAST CANCER
     Route: 065
  9. RADIATION THERAPY NOS [Suspect]
     Indication: BREAST CANCER
     Route: 065
  10. PACLITAXEL [Suspect]
     Indication: BREAST CANCER
     Route: 065
  11. ANASTROZOLE [Suspect]
     Indication: BREAST CANCER
     Route: 065

REACTIONS (1)
  - NUCLEAR MAGNETIC RESONANCE IMAGING ABNORMAL [None]
